FAERS Safety Report 14349342 (Version 1)
Quarter: 2018Q1

REPORT INFORMATION
  Report Type: Spontaneous
  Country: AT (occurrence: AT)
  Receive Date: 20180104
  Receipt Date: 20180104
  Transmission Date: 20180509
  Serious: Yes (Hospitalization, Other)
  Sender: FDA-Public Use
  Company Number: AT-CONCORDIA PHARMACEUTICALS INC.-E2B_00009311

PATIENT
  Age: 45 Year
  Sex: Male
  Weight: 72 kg

DRUGS (57)
  1. PREDNISOLONE. [Suspect]
     Active Substance: PREDNISOLONE
     Route: 048
     Dates: start: 20170617, end: 20170617
  2. ADAMON LONG RETARD 150 MG-FILMTABLETTEN [Suspect]
     Active Substance: TRAMADOL HYDROCHLORIDE
     Route: 048
     Dates: start: 20170707, end: 20170711
  3. CISORDINOL DEPOT [Suspect]
     Active Substance: ZUCLOPENTHIXOL
     Route: 030
     Dates: start: 20170607, end: 20170607
  4. TEMESTA (LORAZEPAM) [Concomitant]
     Active Substance: LORAZEPAM
     Route: 048
     Dates: start: 20170607, end: 20170607
  5. PREDNISOLONE. [Suspect]
     Active Substance: PREDNISOLONE
     Route: 048
     Dates: start: 20170614, end: 20170616
  6. PREDNISOLONE. [Suspect]
     Active Substance: PREDNISOLONE
     Route: 048
     Dates: start: 20170622, end: 20170627
  7. SEROQUEL [Suspect]
     Active Substance: QUETIAPINE FUMARATE
     Route: 048
     Dates: start: 20170621, end: 20170626
  8. CISORDINOL [Suspect]
     Active Substance: ZUCLOPENTHIXOL
     Dates: start: 20170626, end: 20170626
  9. TEMESTA (LORAZEPAM) [Concomitant]
     Active Substance: LORAZEPAM
     Route: 048
     Dates: start: 20170706, end: 20170710
  10. TEMESTA (LORAZEPAM) [Concomitant]
     Active Substance: LORAZEPAM
     Route: 048
     Dates: start: 20170602, end: 20170602
  11. KCL DRAGEES [Concomitant]
     Dates: start: 20170707, end: 20170710
  12. PANTOLOC [Concomitant]
     Active Substance: PANTOPRAZOLE SODIUM
     Route: 048
     Dates: start: 20170615
  13. PREDNISOLONE. [Suspect]
     Active Substance: PREDNISOLONE
     Route: 048
     Dates: start: 20170711, end: 20170713
  14. PREDNISOLONE. [Suspect]
     Active Substance: PREDNISOLONE
     Route: 048
     Dates: start: 20170701, end: 20170703
  15. SOLIAN [Suspect]
     Active Substance: AMISULPRIDE
     Route: 048
     Dates: start: 20170627, end: 20170705
  16. TRAMAL TROPFEN [Concomitant]
     Active Substance: TRAMADOL HYDROCHLORIDE
     Dates: start: 20170618, end: 20170618
  17. TRAMAL TROPFEN [Concomitant]
     Active Substance: TRAMADOL HYDROCHLORIDE
     Dates: start: 20170614, end: 20170614
  18. PREDNISOLONE. [Suspect]
     Active Substance: PREDNISOLONE
     Route: 048
     Dates: start: 20170714
  19. PREDNISOLONE. [Suspect]
     Active Substance: PREDNISOLONE
     Route: 048
     Dates: start: 20170603, end: 20170613
  20. PREDNISOLONE. [Suspect]
     Active Substance: PREDNISOLONE
     Route: 048
     Dates: start: 20170618, end: 20170621
  21. SOLIAN [Suspect]
     Active Substance: AMISULPRIDE
     Route: 048
     Dates: start: 20170707, end: 20170709
  22. SEROQUEL [Suspect]
     Active Substance: QUETIAPINE FUMARATE
     Route: 048
     Dates: start: 20170628, end: 20170710
  23. NOVALGIN (METAMIZOLE SODIUM) [Suspect]
     Active Substance: METAMIZOLE SODIUM
     Route: 048
     Dates: start: 20170709, end: 20170709
  24. CISORDINOL [Suspect]
     Active Substance: ZUCLOPENTHIXOL
     Dates: start: 20170622, end: 20170622
  25. CISORDINOL [Suspect]
     Active Substance: ZUCLOPENTHIXOL
     Dates: start: 20170627, end: 20170706
  26. CISORDINOL [Suspect]
     Active Substance: ZUCLOPENTHIXOL
     Dates: start: 20170710, end: 20170710
  27. TEMESTA (LORAZEPAM) [Concomitant]
     Active Substance: LORAZEPAM
     Route: 048
     Dates: start: 20170623, end: 20170623
  28. SEROQUEL [Suspect]
     Active Substance: QUETIAPINE FUMARATE
     Route: 048
     Dates: start: 20170627, end: 20170627
  29. SEROQUEL XR [Suspect]
     Active Substance: QUETIAPINE FUMARATE
     Route: 048
     Dates: start: 20170603, end: 20170705
  30. TEMESTA (LORAZEPAM) [Concomitant]
     Active Substance: LORAZEPAM
     Route: 048
     Dates: start: 20170705, end: 20170705
  31. TEMESTA (LORAZEPAM) [Concomitant]
     Active Substance: LORAZEPAM
     Route: 048
     Dates: start: 20170701, end: 20170701
  32. TRAMAL TROPFEN [Concomitant]
     Active Substance: TRAMADOL HYDROCHLORIDE
     Dates: start: 20170616, end: 20170617
  33. TRAMAL TROPFEN [Concomitant]
     Active Substance: TRAMADOL HYDROCHLORIDE
     Dates: start: 20170619, end: 20170619
  34. TRAMAL TROPFEN [Concomitant]
     Active Substance: TRAMADOL HYDROCHLORIDE
     Dates: start: 20170621, end: 20170621
  35. TRAMAL RETARD [Concomitant]
     Active Substance: TRAMADOL
     Dates: start: 20170621, end: 20170627
  36. NOVALGIN (METAMIZOLE SODIUM) [Suspect]
     Active Substance: METAMIZOLE SODIUM
     Route: 048
     Dates: start: 20170620, end: 20170705
  37. NOVALGIN (METAMIZOLE SODIUM) [Suspect]
     Active Substance: METAMIZOLE SODIUM
     Route: 048
     Dates: start: 20170617, end: 20170621
  38. TEMESTA (LORAZEPAM) [Concomitant]
     Active Substance: LORAZEPAM
     Route: 048
     Dates: start: 20170604, end: 20170606
  39. TEMESTA (LORAZEPAM) [Concomitant]
     Active Substance: LORAZEPAM
     Route: 048
     Dates: start: 20170608, end: 20170622
  40. TRAMAL TROPFEN [Concomitant]
     Active Substance: TRAMADOL HYDROCHLORIDE
     Dates: start: 20170620, end: 20170620
  41. PREDNISOLONE. [Suspect]
     Active Substance: PREDNISOLONE
     Route: 048
     Dates: start: 20170628, end: 20170630
  42. SOLIAN [Suspect]
     Active Substance: AMISULPRIDE
     Route: 048
     Dates: start: 20170711, end: 20170711
  43. SOLIAN [Suspect]
     Active Substance: AMISULPRIDE
     Route: 048
     Dates: start: 20170710, end: 20170710
  44. SOLIAN [Suspect]
     Active Substance: AMISULPRIDE
     Route: 048
     Dates: start: 20170706, end: 20170706
  45. SEROQUEL [Suspect]
     Active Substance: QUETIAPINE FUMARATE
     Route: 048
     Dates: start: 20170603, end: 20170620
  46. ADAMON LONG RETARD 150 MG-FILMTABLETTEN [Suspect]
     Active Substance: TRAMADOL HYDROCHLORIDE
     Route: 048
     Dates: start: 20170628, end: 20170706
  47. TEMESTA (LORAZEPAM) [Concomitant]
     Active Substance: LORAZEPAM
     Route: 048
     Dates: start: 20170629, end: 20170629
  48. TEMESTA (LORAZEPAM) [Concomitant]
     Active Substance: LORAZEPAM
     Route: 048
     Dates: start: 20170603, end: 20170603
  49. TEMESTA (LORAZEPAM) [Concomitant]
     Active Substance: LORAZEPAM
     Route: 048
     Dates: start: 20170630, end: 20170630
  50. PREDNISOLONE. [Suspect]
     Active Substance: PREDNISOLONE
     Route: 048
     Dates: start: 20170704, end: 20170710
  51. SEROQUEL [Suspect]
     Active Substance: QUETIAPINE FUMARATE
     Route: 048
     Dates: start: 20170711, end: 20170711
  52. CISORDINOL [Suspect]
     Active Substance: ZUCLOPENTHIXOL
     Dates: start: 20170623, end: 20170625
  53. TEMESTA (LORAZEPAM) [Concomitant]
     Active Substance: LORAZEPAM
     Route: 048
     Dates: start: 20170702, end: 20170704
  54. TEMESTA (LORAZEPAM) [Concomitant]
     Active Substance: LORAZEPAM
     Route: 048
     Dates: start: 20170627, end: 20170628
  55. NACL KAPSELN [Concomitant]
     Route: 048
     Dates: start: 20170621, end: 20170623
  56. NACL KAPSELN [Concomitant]
     Route: 048
     Dates: start: 20170703, end: 20170706
  57. TRAMAL TROPFEN [Concomitant]
     Active Substance: TRAMADOL HYDROCHLORIDE
     Dates: start: 20170615, end: 20170615

REACTIONS (1)
  - Liver function test increased [Recovered/Resolved]

NARRATIVE: CASE EVENT DATE: 20170703
